FAERS Safety Report 23085406 (Version 1)
Quarter: 2023Q4

REPORT INFORMATION
  Report Type: Spontaneous
  Country: IT (occurrence: IT)
  Receive Date: 20231019
  Receipt Date: 20231019
  Transmission Date: 20240110
  Serious: Yes (Disabling, Other)
  Sender: FDA-Public Use
  Company Number: IT-MAYNE PHARMA-2023MYN000616

PATIENT

DRUGS (1)
  1. BIJUVA [Suspect]
     Active Substance: ESTRADIOL\PROGESTERONE
     Indication: Menopause
     Dosage: 1 DF, QD
     Route: 048
     Dates: start: 202308

REACTIONS (5)
  - Feeling drunk [Recovered/Resolved]
  - Dizziness [Recovered/Resolved]
  - Dysstasia [Recovered/Resolved]
  - Ataxia [Recovered/Resolved]
  - Muscular weakness [Recovered/Resolved]
